FAERS Safety Report 9717258 (Version 2)
Quarter: 2013Q4

REPORT INFORMATION
  Report Type: Spontaneous
  Country: FR (occurrence: FR)
  Receive Date: 20131127
  Receipt Date: 20131230
  Transmission Date: 20140711
  Serious: Yes (Other)
  Sender: FDA-Public Use
  Company Number: FR-WATSON-2013-21897

PATIENT
  Age: 23 Year
  Sex: Female

DRUGS (3)
  1. PROPRANOLOL [Suspect]
     Indication: PRODUCT USED FOR UNKNOWN INDICATION
     Dosage: 56 DF, SINGLE (56 TB)
     Route: 048
  2. DEBRIDAT /00465201/ [Suspect]
     Indication: PRODUCT USED FOR UNKNOWN INDICATION
     Dosage: 2000 MG, SINGLE (20 TB OF 100 MG)
     Route: 048
  3. SPASFON /00765801/ [Suspect]
     Indication: PRODUCT USED FOR UNKNOWN INDICATION
     Dosage: 6 DF, SINGLE (6 TB)
     Route: 048

REACTIONS (3)
  - Cardiac failure congestive [Unknown]
  - Electrocardiogram PR prolongation [Unknown]
  - Overdose [Unknown]
